FAERS Safety Report 7855316-3 (Version None)
Quarter: 2011Q4

REPORT INFORMATION
  Report Type: 
  Country: None (occurrence: None)
  Receive Date: 20111026
  Receipt Date: 20111020
  Transmission Date: 20120403
  Serious: Yes (Hospitalization)
  Sender: FDA-Public Use
  Company Number: US-ABBOTT-11P-163-0866870-00

PATIENT
  Age: 20 Year
  Sex: Male
  Weight: 57.6 kg

DRUGS (1)
  1. CREON [Suspect]
     Indication: CYSTIC FIBROSIS
     Dosage: TAKES 6-8 CAPSULES WITH MEALS AND 4-5 CAPSULES WITH SNACKS DAILY
     Route: 048

REACTIONS (5)
  - FAECAL VOLUME DECREASED [None]
  - BOWEL MOVEMENT IRREGULARITY [None]
  - NAUSEA [None]
  - SMALL INTESTINAL OBSTRUCTION [None]
  - VOMITING [None]
